FAERS Safety Report 7964934-3 (Version None)
Quarter: 2011Q4

REPORT INFORMATION
  Report Type: 
  Country: None (occurrence: None)
  Receive Date: 20111208
  Receipt Date: 20111208
  Transmission Date: 20120403
  Serious: No
  Sender: FDA-Public Use
  Company Number: None

PATIENT
  Age: 35 Year
  Sex: Female

DRUGS (1)
  1. CLARITHROMYCIN [Suspect]
     Dosage: UNKNOWN
     Route: 048
     Dates: start: 20110605, end: 20110606

REACTIONS (2)
  - HYPERSENSITIVITY [None]
  - CHEST DISCOMFORT [None]
